FAERS Safety Report 6359936-7 (Version None)
Quarter: 2009Q3

REPORT INFORMATION
  Report Type: 
  Country: None (occurrence: None)
  Receive Date: 20090917
  Receipt Date: 20090911
  Transmission Date: 20100115
  Serious: Yes (Death, Hospitalization, Other)
  Sender: FDA-Public Use
  Company Number: US-PFIZER INC-2009237510

PATIENT

DRUGS (3)
  1. SUTENT [Suspect]
     Indication: METASTATIC RENAL CELL CARCINOMA
     Dosage: 50 MG, 1X/DAY
     Route: 048
     Dates: start: 20090613, end: 20090619
  2. ASPIRIN [Concomitant]
     Dosage: 81 MG, 1X/DAY
  3. PLAVIX [Concomitant]
     Dosage: 75 MG, 1X/DAY

REACTIONS (8)
  - ABDOMINAL PAIN LOWER [None]
  - ACUTE HEPATIC FAILURE [None]
  - ASTHENIA [None]
  - CHROMATURIA [None]
  - NAUSEA [None]
  - RENAL FAILURE ACUTE [None]
  - THROMBOCYTOPENIA [None]
  - VOMITING [None]
